FAERS Safety Report 21710285 (Version 2)
Quarter: 2022Q4

REPORT INFORMATION
  Report Type: Report from Study
  Country: US (occurrence: US)
  Receive Date: 20221211
  Receipt Date: 20221215
  Transmission Date: 20230113
  Serious: Yes (Hospitalization, Other)
  Sender: FDA-Public Use
  Company Number: US-ABBVIE-4231069

PATIENT
  Age: 25 Year
  Sex: Male
  Weight: 70.306 kg

DRUGS (4)
  1. HUMIRA [Suspect]
     Active Substance: ADALIMUMAB
     Indication: Crohn^s disease
     Route: 058
     Dates: start: 202108, end: 202208
  2. SOLU-MEDROL [Concomitant]
     Active Substance: METHYLPREDNISOLONE SODIUM SUCCINATE
     Indication: Product used for unknown indication
  3. PRIVIGEN [Concomitant]
     Active Substance: HUMAN IMMUNOGLOBULIN G
     Indication: Product used for unknown indication
  4. PRIVIGEN [Concomitant]
     Active Substance: HUMAN IMMUNOGLOBULIN G
     Indication: Product used for unknown indication
     Route: 042

REACTIONS (14)
  - Asthenia [Recovering/Resolving]
  - Visual impairment [Recovering/Resolving]
  - Feeling abnormal [Recovering/Resolving]
  - Nervous system disorder [Recovering/Resolving]
  - Vertebral lesion [Recovering/Resolving]
  - Central nervous system lesion [Recovering/Resolving]
  - Insomnia [Recovering/Resolving]
  - Hospitalisation [Unknown]
  - Eye disorder [Unknown]
  - Muscular weakness [Recovering/Resolving]
  - Vertigo [Recovering/Resolving]
  - Dizziness [Unknown]
  - Noninfective encephalitis [Recovering/Resolving]
  - Crohn^s disease [Unknown]

NARRATIVE: CASE EVENT DATE: 20220701
